FAERS Safety Report 6705289-1 (Version None)
Quarter: 2010Q2

REPORT INFORMATION
  Report Type: 
  Country: None (occurrence: None)
  Receive Date: 20100430
  Receipt Date: 20100421
  Transmission Date: 20101027
  Serious: Yes (Death)
  Sender: FDA-Public Use
  Company Number: TW-MERCK-1004TWN00081

PATIENT
  Age: 86 Year
  Sex: Male
  Weight: 73 kg

DRUGS (11)
  1. CANCIDAS [Suspect]
     Indication: SYSTEMIC CANDIDA
     Route: 041
  2. CILASTATIN SODIUM AND IMIPENEM [Concomitant]
     Indication: SEPSIS
     Route: 042
  3. TEICOPLANIN [Concomitant]
     Indication: SEPSIS
     Route: 042
  4. SPIRONOLACTONE [Concomitant]
     Route: 048
  5. PANTOPRAZOLE [Concomitant]
     Route: 042
  6. METOCLOPRAMIDE [Concomitant]
     Route: 042
  7. DIGOXIN [Concomitant]
     Route: 048
  8. CYPROHEPTADINE HYDROCHLORIDE [Concomitant]
     Route: 048
  9. BUDESONIDE [Concomitant]
     Route: 065
  10. AMINO ACIDS (UNSPECIFIED) [Concomitant]
     Route: 041
  11. ACETYLCYSTEINE [Concomitant]
     Route: 048

REACTIONS (6)
  - BLOOD CREATININE INCREASED [None]
  - BLOOD UREA INCREASED [None]
  - DEPRESSED LEVEL OF CONSCIOUSNESS [None]
  - SEPSIS [None]
  - SHOCK [None]
  - TOXIC EPIDERMAL NECROLYSIS [None]
